FAERS Safety Report 7512286-5 (Version None)
Quarter: 2011Q2

REPORT INFORMATION
  Report Type: 
  Country: None (occurrence: None)
  Receive Date: 20110531
  Receipt Date: 20110520
  Transmission Date: 20111010
  Serious: Yes (Other)
  Sender: FDA-Public Use
  Company Number: PHHY2011JP40874

PATIENT
  Age: 10 Month

DRUGS (1)
  1. TEGRETOL [Suspect]
     Indication: EPILEPSY
     Dosage: 5 MG/KG/ DAY
     Route: 048

REACTIONS (6)
  - NEUTROPENIA [None]
  - PURPURA [None]
  - LYMPHOCYTE STIMULATION TEST POSITIVE [None]
  - DRUG ERUPTION [None]
  - WHITE BLOOD CELL COUNT INCREASED [None]
  - LYMPHOCYTOSIS [None]
